FAERS Safety Report 17000276 (Version 2)
Quarter: 2020Q1

REPORT INFORMATION
  Report Type: Spontaneous
  Country: CH (occurrence: CH)
  Receive Date: 20191106
  Receipt Date: 20200103
  Transmission Date: 20200409
  Serious: Yes (Hospitalization)
  Sender: FDA-Public Use
  Company Number: CH-SA-2019SA302329

PATIENT
  Age: 84 Year
  Sex: Female

DRUGS (23)
  1. TORASEMIDE [Suspect]
     Active Substance: TORSEMIDE
     Dosage: 15 MG, QD
     Route: 048
     Dates: start: 20191008, end: 20191016
  2. VERAPAMIL HYDROCHLORIDE. [Suspect]
     Active Substance: VERAPAMIL HYDROCHLORIDE
     Dosage: 2.5 MG, TOTAL
     Route: 013
     Dates: start: 20191014, end: 20191014
  3. LASIX [Concomitant]
     Active Substance: FUROSEMIDE
     Dosage: UNK
     Route: 065
  4. ISONIAZID. [Concomitant]
     Active Substance: ISONIAZID
     Dosage: UNK
     Route: 065
  5. TEMESTA EXPIDET [Concomitant]
     Active Substance: LORAZEPAM
     Dosage: UNK
     Route: 065
  6. MOVICOL [Concomitant]
     Active Substance: POLYETHYLENE GLYCOL 3350\POTASSIUM CHLORIDE\SODIUM BICARBONATE\SODIUM CHLORIDE
     Dosage: UNK UNK, PRN
     Route: 048
     Dates: start: 20191004
  7. LIDOCAINE HYDROCHLORIDE. [Concomitant]
     Active Substance: LIDOCAINE HYDROCHLORIDE
     Dosage: IN TOTAL
     Route: 058
     Dates: start: 20191014, end: 20191014
  8. HEPARIN [Concomitant]
     Active Substance: HEPARIN SODIUM
     Dosage: 4000 IU, TOTAL
     Route: 013
     Dates: start: 20191014, end: 20191014
  9. DAFALGAN [Concomitant]
     Active Substance: ACETAMINOPHEN
     Dosage: UNK UNK, PRN
     Route: 048
  10. CLEXANE [Suspect]
     Active Substance: ENOXAPARIN SODIUM
     Dosage: 40 MG, BID
     Route: 058
     Dates: start: 201910, end: 20191016
  11. RIFAMPICIN [Concomitant]
     Active Substance: RIFAMPIN
     Dosage: UNK
     Route: 065
  12. TORASEMIDE [Suspect]
     Active Substance: TORSEMIDE
     Dosage: 15 MG
     Route: 048
     Dates: start: 20191008, end: 20191016
  13. CLEXANE [Suspect]
     Active Substance: ENOXAPARIN SODIUM
     Dosage: 50 MG, BID
     Route: 058
     Dates: start: 20191009, end: 201910
  14. ACIDUM FOLICUM [Concomitant]
     Active Substance: FOLIC ACID
     Dosage: UNK
     Route: 065
  15. VITAMIN B6 [Concomitant]
     Active Substance: PYRIDOXINE HYDROCHLORIDE
     Dosage: UNK
     Route: 065
  16. DAFALGAN [Concomitant]
     Active Substance: ACETAMINOPHEN
     Dosage: AS NECESSARY
     Route: 048
  17. CLEXANE [Suspect]
     Active Substance: ENOXAPARIN SODIUM
     Dosage: 40 MG
     Route: 058
     Dates: start: 201910, end: 20191016
  18. IODIXANOL. [Suspect]
     Active Substance: IODIXANOL
     Dosage: 1 DF, TOTAL
     Route: 042
     Dates: start: 20191014, end: 20191014
  19. HYDROCHLOROTHIAZIDE. [Suspect]
     Active Substance: HYDROCHLOROTHIAZIDE
     Dosage: 12.5 MG, QD
     Route: 048
     Dates: start: 20191016, end: 20191018
  20. SINTROM [Concomitant]
     Active Substance: ACENOCOUMAROL
     Dosage: UNK
     Route: 065
  21. METOLAZONE. [Concomitant]
     Active Substance: METOLAZONE
     Dosage: 2.5 MG, UNK
     Route: 048
     Dates: start: 20191006, end: 20191007
  22. BELOC ZOK [Concomitant]
     Active Substance: METOPROLOL SUCCINATE
     Dosage: UNK
     Route: 065
  23. VITARUBIN [CYANOCOBALAMIN] [Concomitant]
     Dosage: UNK
     Route: 065

REACTIONS (4)
  - Rash maculo-papular [Recovered/Resolved]
  - Pyrexia [Recovered/Resolved]
  - C-reactive protein increased [Recovering/Resolving]
  - Pain [Recovered/Resolved]

NARRATIVE: CASE EVENT DATE: 20191015
